FAERS Safety Report 23495923 (Version 1)
Quarter: 2024Q1

REPORT INFORMATION
  Report Type: Spontaneous
  Country: AR (occurrence: AR)
  Receive Date: 20240207
  Receipt Date: 20240207
  Transmission Date: 20240410
  Serious: Yes (Other)
  Sender: FDA-Public Use
  Company Number: AR-PFIZER INC-PV202400016922

PATIENT
  Age: 71 Year
  Sex: Female
  Weight: 66 kg

DRUGS (4)
  1. XELJANZ XR [Suspect]
     Active Substance: TOFACITINIB CITRATE
     Indication: Rheumatoid arthritis
     Dosage: UNK
     Dates: start: 2016
  2. METHOTREXATE [Concomitant]
     Active Substance: METHOTREXATE
  3. IBUPROFEN [Concomitant]
     Active Substance: IBUPROFEN
  4. PREDNISONE [Concomitant]
     Active Substance: PREDNISONE

REACTIONS (3)
  - Rheumatoid arthritis [Unknown]
  - Spinal osteoarthritis [Unknown]
  - Cardiomegaly [Unknown]
